FAERS Safety Report 5065040-0 (Version None)
Quarter: 2006Q3

REPORT INFORMATION
  Report Type: 
  Country: None (occurrence: None)
  Receive Date: 20060726
  Receipt Date: 20060717
  Transmission Date: 20061208
  Serious: Yes (Other)
  Sender: FDA-Public Use
  Company Number: 226859

PATIENT
  Age: 45 Year
  Sex: Female
  Weight: 62 kg

DRUGS (3)
  1. XOLAIR [Suspect]
     Indication: ASTHMA
     Dosage: 225 Q2W
     Dates: start: 20050921, end: 20051129
  2. XOLAIR [Suspect]
     Indication: ASTHMA
     Dosage: 225 MG, SUBCUTANEOUS
     Route: 058
     Dates: end: 20060619
  3. ANTIHISTAMINE (ANTIHISTAMINE) [Concomitant]

REACTIONS (3)
  - ECZEMA [None]
  - PAIN IN EXTREMITY [None]
  - RASH [None]
